FAERS Safety Report 7840920-9 (Version None)
Quarter: 2011Q4

REPORT INFORMATION
  Report Type: 
  Country: None (occurrence: None)
  Receive Date: 20111021
  Receipt Date: 20111021
  Transmission Date: 20120403
  Serious: Yes (Hospitalization, Other)
  Sender: FDA-Public Use
  Company Number: None

PATIENT
  Age: 17 Year
  Sex: Female
  Weight: 58.0604 kg

DRUGS (1)
  1. MINOCYCLINE HCL [Suspect]
     Indication: ACNE
     Dosage: 50MG 2X DAY
     Dates: start: 20100401, end: 20110701

REACTIONS (7)
  - FATIGUE [None]
  - GAIT DISTURBANCE [None]
  - ARTHRALGIA [None]
  - PAIN [None]
  - LUPUS-LIKE SYNDROME [None]
  - VASCULITIS [None]
  - MYALGIA [None]
